FAERS Safety Report 14935292 (Version 1)
Quarter: 2018Q2

REPORT INFORMATION
  Report Type: Spontaneous
  Country: BR (occurrence: BR)
  Receive Date: 20180524
  Receipt Date: 20180524
  Transmission Date: 20180711
  Serious: Yes (Other)
  Sender: FDA-Public Use
  Company Number: BR-VIRTUS PHARMACEUTICALS, LLC-2018VTS00078

PATIENT
  Age: 69 Year
  Sex: Male

DRUGS (3)
  1. CLOFAZIMINE [Concomitant]
     Active Substance: CLOFAZIMINE
     Indication: LEPROSY
     Route: 065
  2. RIFAMPICIN [Concomitant]
     Active Substance: RIFAMPIN
     Indication: LEPROSY
     Route: 065
  3. DAPSONE. [Suspect]
     Active Substance: DAPSONE
     Indication: LEPROSY

REACTIONS (3)
  - Toxicity to various agents [Unknown]
  - Pancytopenia [Unknown]
  - Bone marrow failure [Unknown]
